FAERS Safety Report 23681000 (Version 1)
Quarter: 2024Q1

REPORT INFORMATION
  Report Type: Spontaneous
  Country: US (occurrence: US)
  Receive Date: 20240328
  Receipt Date: 20240328
  Transmission Date: 20240410
  Serious: Yes (Hospitalization, Other)
  Sender: FDA-Public Use
  Company Number: US-CADILA HEALTHCARE LIMITED-US-ZYDUS-104729

PATIENT

DRUGS (2)
  1. FENTANYL [Suspect]
     Active Substance: FENTANYL\FENTANYL CITRATE
     Indication: Product used for unknown indication
     Dosage: UNK
     Route: 065
  2. PROPOFOL [Concomitant]
     Active Substance: PROPOFOL
     Indication: Carbon monoxide poisoning
     Dosage: UNK
     Route: 065

REACTIONS (4)
  - Carbon monoxide poisoning [Recovering/Resolving]
  - Drug ineffective [Unknown]
  - Drug abuse [Unknown]
  - Overdose [Unknown]
